FAERS Safety Report 5067902-7 (Version None)
Quarter: 2006Q3

REPORT INFORMATION
  Report Type: 
  Country: None (occurrence: None)
  Receive Date: 20060802
  Receipt Date: 20060721
  Transmission Date: 20061208
  Serious: Yes (Other)
  Sender: FDA-Public Use
  Company Number: FR-GILEAD-2006-0009909

PATIENT
  Sex: Male
  Weight: 80 kg

DRUGS (5)
  1. TRUVADA [Suspect]
     Indication: HIV INFECTION
     Route: 048
     Dates: start: 20060326, end: 20060403
  2. TRUVADA [Suspect]
     Route: 048
     Dates: start: 20060517, end: 20060520
  3. SUSTIVA [Concomitant]
     Indication: HIV INFECTION
     Route: 048
     Dates: start: 20060326, end: 20060403
  4. SAQUINAVIR [Concomitant]
     Indication: HIV INFECTION
     Route: 048
     Dates: start: 20060517
  5. RITONAVIR [Concomitant]
     Indication: HIV INFECTION
     Route: 048
     Dates: start: 20060517

REACTIONS (5)
  - CONJUNCTIVAL HYPERAEMIA [None]
  - FACE OEDEMA [None]
  - GENERALISED ERYTHEMA [None]
  - PYREXIA [None]
  - TOXIC SKIN ERUPTION [None]
